FAERS Safety Report 7325969-7 (Version None)
Quarter: 2011Q1

REPORT INFORMATION
  Report Type: 
  Country: None (occurrence: None)
  Receive Date: 20110302
  Receipt Date: 20110224
  Transmission Date: 20110831
  Serious: Yes (Other)
  Sender: FDA-Public Use
  Company Number: US-PFIZER INC-2010166210

PATIENT
  Sex: Female

DRUGS (5)
  1. PROZAC [Concomitant]
     Indication: DEPRESSION
     Dosage: UNK
     Dates: start: 20080201
  2. PROZAC [Concomitant]
     Indication: ANXIETY
  3. CHANTIX [Suspect]
     Indication: SMOKING CESSATION THERAPY
     Dosage: UNK
     Dates: start: 20080601, end: 20080901
  4. TRAZODONE [Concomitant]
     Indication: INSOMNIA
     Dosage: UNK
     Dates: start: 20080201
  5. TAPAZOL [Concomitant]
     Indication: HYPERTHYROIDISM
     Dosage: UNK
     Dates: start: 20070101

REACTIONS (6)
  - ANGER [None]
  - SUICIDAL IDEATION [None]
  - ANXIETY [None]
  - DEPRESSION [None]
  - INSOMNIA [None]
  - AGGRESSION [None]
